FAERS Safety Report 5528237-9 (Version None)
Quarter: 2007Q4

REPORT INFORMATION
  Report Type: 
  Country: None (occurrence: None)
  Receive Date: 20071128
  Receipt Date: 20071116
  Transmission Date: 20080405
  Serious: Yes (Other)
  Sender: FDA-Public Use
  Company Number: NO-PFIZER INC-2007092378

PATIENT
  Sex: Female

DRUGS (3)
  1. LYRICA [Suspect]
     Indication: PAIN
     Route: 048
  2. LYRICA [Suspect]
     Indication: BACK PAIN
  3. PARALGIN FORTE [Suspect]
     Indication: PAIN
     Route: 048

REACTIONS (2)
  - DRUG ABUSER [None]
  - DRUG DEPENDENCE [None]
